FAERS Safety Report 5758991-2 (Version None)
Quarter: 2008Q2

REPORT INFORMATION
  Report Type: 
  Country: None (occurrence: None)
  Receive Date: 20080604
  Receipt Date: 20080528
  Transmission Date: 20081010
  Serious: No
  Sender: FDA-Public Use
  Company Number: US-BAXTER-2008BH005524

PATIENT
  Sex: Male
  Weight: 90 kg

DRUGS (10)
  1. HEPARIN SODIUM INJECTION [Suspect]
     Indication: PROPHYLAXIS
     Dosage: DOSE UNIT:UNKNOWN
     Route: 065
  2. FINASTERIDE [Concomitant]
     Dosage: DOSE UNIT:UNKNOWN
     Route: 065
  3. VALSARTAN [Concomitant]
     Dosage: DOSE UNIT:UNKNOWN
     Route: 065
  4. PANTOPRAZOLE [Concomitant]
     Dosage: DOSE UNIT:UNKNOWN
     Route: 065
  5. ASCORBIC ACID [Concomitant]
     Dosage: DOSE UNIT:UNKNOWN
     Route: 065
  6. CALCITRIOL [Concomitant]
     Dosage: DOSE UNIT:UNKNOWN
     Route: 065
  7. ASPIRIN [Concomitant]
     Dosage: DOSE UNIT:UNKNOWN
     Route: 065
  8. CLONIDINE [Concomitant]
     Dosage: DOSE UNIT:UNKNOWN
     Route: 065
  9. RENAGEL [Concomitant]
     Dosage: DOSE UNIT:UNKNOWN
     Route: 065
  10. FOLIC ACID [Concomitant]
     Dosage: DOSE UNIT:UNKNOWN
     Route: 065

REACTIONS (13)
  - BACK PAIN [None]
  - BURNING SENSATION [None]
  - CHEST PAIN [None]
  - DIZZINESS [None]
  - DRY SKIN [None]
  - DYSPNOEA [None]
  - HYPERSENSITIVITY [None]
  - LOSS OF CONSCIOUSNESS [None]
  - PALPITATIONS [None]
  - POOR QUALITY SLEEP [None]
  - PRURITUS [None]
  - URTICARIA [None]
  - VOMITING [None]
